FAERS Safety Report 17460992 (Version 1)
Quarter: 2020Q1

REPORT INFORMATION
  Report Type: Report from Study
  Country: None (occurrence: BR)
  Receive Date: 20200226
  Receipt Date: 20200226
  Transmission Date: 20200409
  Serious: Yes (Other)
  Sender: FDA-Public Use
  Company Number: BR-ABBVIE-17K-020-2160160-00

PATIENT
  Age: 32 Year
  Sex: Female
  Weight: 66 kg

DRUGS (5)
  1. HUMIRA [Suspect]
     Active Substance: ADALIMUMAB
     Dosage: WEEK 2
     Route: 058
     Dates: start: 20160218, end: 20160218
  2. HUMIRA [Suspect]
     Active Substance: ADALIMUMAB
     Route: 058
     Dates: end: 202001
  3. METHOTREXATE. [Concomitant]
     Active Substance: METHOTREXATE
     Indication: ENTEROPATHIC SPONDYLITIS
  4. HUMIRA [Suspect]
     Active Substance: ADALIMUMAB
     Indication: CROHN^S DISEASE
     Route: 058
     Dates: start: 20160204, end: 20160204
  5. MODULEN IBD [Concomitant]
     Active Substance: CARBOHYDRATES\FATTY ACIDS\MINERALS\PROTEIN\VITAMINS
     Indication: CROHN^S DISEASE

REACTIONS (8)
  - Enteropathic spondylitis [Unknown]
  - Movement disorder [Recovering/Resolving]
  - Rheumatoid arthritis [Recovered/Resolved]
  - Sjogren^s syndrome [Recovered/Resolved]
  - Asthenia [Recovering/Resolving]
  - Meniere^s disease [Recovered/Resolved]
  - Autoimmune disorder [Recovered/Resolved]
  - Behcet^s syndrome [Recovered/Resolved]

NARRATIVE: CASE EVENT DATE: 201608
